FAERS Safety Report 4417340-2 (Version None)
Quarter: 2004Q3

REPORT INFORMATION
  Report Type: 
  Country: None (occurrence: None)
  Receive Date: 20040806
  Receipt Date: 20040726
  Transmission Date: 20050211
  Serious: Yes (Death, Life-Threatening, Hospitalization, Disabling, Other)
  Sender: FDA-Public Use
  Company Number: DZ-GLAXOSMITHKLINE-B0340706A

PATIENT
  Age: 8 Year
  Sex: Female

DRUGS (2)
  1. LAMICTAL [Suspect]
     Indication: EPILEPSY
     Dosage: 5MG PER DAY
     Route: 048
     Dates: start: 20040711, end: 20040717
  2. DEPAKINE [Suspect]
     Indication: EPILEPSY
     Dosage: 250MG TWICE PER DAY
     Route: 048

REACTIONS (7)
  - ARTHRALGIA [None]
  - ERYTHEMA [None]
  - PRURITUS GENERALISED [None]
  - PYREXIA [None]
  - SKIN DESQUAMATION [None]
  - TOXIC EPIDERMAL NECROLYSIS [None]
  - VULVITIS [None]
